FAERS Safety Report 5108944-2 (Version None)
Quarter: 2006Q3

REPORT INFORMATION
  Report Type: 
  Country: None (occurrence: None)
  Receive Date: 20060920
  Receipt Date: 20060906
  Transmission Date: 20061208
  Serious: Yes (Death, Hospitalization)
  Sender: FDA-Public Use
  Company Number: HQWYE408207SEP06

PATIENT
  Age: 64 Year
  Sex: Female

DRUGS (7)
  1. ENBREL [Suspect]
     Indication: RHEUMATOID ARTHRITIS
     Dosage: UNKNOWN
     Route: 058
     Dates: start: 20041102, end: 20060508
  2. MELOXICAM [Concomitant]
     Indication: RHEUMATOID ARTHRITIS
     Dosage: 15 MG (FREQUENCY UNKNOWN)
  3. OMEPRAZOLE [Concomitant]
  4. PLENDIL [Concomitant]
     Indication: HYPERTENSION
  5. AMARYL [Concomitant]
     Indication: DIABETES MELLITUS
  6. PREDNISONUM [Concomitant]
     Indication: RHEUMATOID ARTHRITIS
  7. BISOPROLOL FUMARATE [Concomitant]
     Indication: HYPERTENSION

REACTIONS (5)
  - BIOPSY BONE MARROW ABNORMAL [None]
  - DEATH [None]
  - INTESTINAL HAEMORRHAGE [None]
  - NEOPLASM MALIGNANT [None]
  - RED BLOOD CELL SEDIMENTATION RATE INCREASED [None]
